FAERS Safety Report 17616056 (Version 1)
Quarter: 2020Q2

REPORT INFORMATION
  Report Type: Spontaneous
  Country: US (occurrence: US)
  Receive Date: 20200402
  Receipt Date: 20200402
  Transmission Date: 20200713
  Serious: No
  Sender: FDA-Public Use
  Company Number: US-ASTRAZENECA-2020SE34098

PATIENT
  Sex: Female

DRUGS (4)
  1. SYMBICORT [Suspect]
     Active Substance: BUDESONIDE\FORMOTEROL FUMARATE DIHYDRATE
     Indication: EMPHYSEMA
     Dosage: 80/4.5 UG, TWO PUFFS TWO TIMES A DAY
     Route: 055
     Dates: start: 201903
  2. SYMBICORT [Suspect]
     Active Substance: BUDESONIDE\FORMOTEROL FUMARATE DIHYDRATE
     Indication: CHRONIC OBSTRUCTIVE PULMONARY DISEASE
     Dosage: 80/4.5 UG, TWO PUFFS TWO TIMES A DAY
     Route: 055
     Dates: start: 201903
  3. OXYGEN. [Concomitant]
     Active Substance: OXYGEN
     Dosage: 2.0L CONTINUOUSLY
  4. DUONEB [Concomitant]
     Active Substance: ALBUTEROL SULFATE\IPRATROPIUM BROMIDE

REACTIONS (8)
  - Hypersensitivity [Unknown]
  - Blood potassium abnormal [Not Recovered/Not Resolved]
  - Sinusitis [Not Recovered/Not Resolved]
  - Glycosylated haemoglobin abnormal [Unknown]
  - Device issue [Unknown]
  - Sinusitis [Unknown]
  - Abdominal discomfort [Not Recovered/Not Resolved]
  - Throat clearing [Not Recovered/Not Resolved]
